FAERS Safety Report 17205742 (Version 1)
Quarter: 2019Q4

REPORT INFORMATION
  Report Type: Spontaneous
  Country: US (occurrence: US)
  Receive Date: 20191227
  Receipt Date: 20191227
  Transmission Date: 20200122
  Serious: Yes (Other)
  Sender: FDA-Public Use
  Company Number: US-STRIDES ARCOLAB LIMITED-2019SP010983

PATIENT
  Age: 44 Year
  Sex: Female

DRUGS (3)
  1. LIDOCAINE. [Suspect]
     Active Substance: LIDOCAINE
     Indication: GASTROOESOPHAGEAL REFLUX DISEASE
     Dosage: 2% VISCOUS LIDOCAINE (20 MG/ML), SINGLE
     Route: 048
  2. METHYLPARABEN. [Concomitant]
     Active Substance: METHYLPARABEN
     Indication: GASTROOESOPHAGEAL REFLUX DISEASE
     Dosage: UNK
     Route: 065
  3. MAALOX ANTACID [Concomitant]
     Active Substance: ALUMINUM HYDROXIDE\DIMETHICONE\MAGNESIUM HYDROXIDE
     Indication: GASTROOESOPHAGEAL REFLUX DISEASE
     Dosage: UNK
     Route: 065

REACTIONS (4)
  - Type I hypersensitivity [Recovered/Resolved]
  - Angioedema [Recovered/Resolved]
  - Urticaria [Recovered/Resolved]
  - Lip swelling [Recovered/Resolved]
